FAERS Safety Report 9225275 (Version 1)
Quarter: 2013Q2

REPORT INFORMATION
  Report Type: Spontaneous
  Country: RO (occurrence: RO)
  Receive Date: 20130411
  Receipt Date: 20130411
  Transmission Date: 20140414
  Serious: Yes (Disabling)
  Sender: FDA-Public Use
  Company Number: RO-009507513-1304ROM004487

PATIENT
  Age: 68 Year
  Sex: Female

DRUGS (3)
  1. FOSAVANCE [Suspect]
     Indication: OSTEOPOROSIS
     Dosage: 70MG/5600IU, QW
     Route: 048
     Dates: start: 201209, end: 201302
  2. CALCIUM LACTATE [Concomitant]
     Indication: OSTEOPOROSIS
     Dosage: 500 MG, QD
     Route: 048
     Dates: start: 201209
  3. MAGNESIUM (UNSPECIFIED) (+) PYRIDOXAL PHOSPHATE [Concomitant]
     Indication: OSTEOPOROSIS
     Dosage: 1 DF, QD
     Dates: start: 201209

REACTIONS (3)
  - Visual impairment [Not Recovered/Not Resolved]
  - Choroiditis [Not Recovered/Not Resolved]
  - Vitreous floaters [Not Recovered/Not Resolved]
